FAERS Safety Report 14320682 (Version 1)
Quarter: 2017Q4

REPORT INFORMATION
  Report Type: Report from Study
  Country: JP (occurrence: JP)
  Receive Date: 20171223
  Receipt Date: 20171223
  Transmission Date: 20180321
  Serious: Yes (Other)
  Sender: FDA-Public Use
  Company Number: JP-ROCHE-2044166

PATIENT

DRUGS (8)
  1. ETOPOSIDE. [Suspect]
     Active Substance: ETOPOSIDE
     Indication: LYMPHOMA
     Dosage: MEM REGIMEN ON DAYS -6 TO -3
     Route: 065
  2. RANIMUSTINE [Suspect]
     Active Substance: RANIMUSTINE
     Dosage: MEAM REGIMEN: ON DAY -7
     Route: 065
  3. RANIMUSTINE [Suspect]
     Active Substance: RANIMUSTINE
     Indication: LYMPHOMA
     Dosage: MEM REGIMEN: ON DAYS -7 AND -2
     Route: 065
  4. MELPHALAN. [Suspect]
     Active Substance: MELPHALAN
     Indication: LYMPHOMA
     Dosage: MEM REGIMEN: ON DAY -1
     Route: 065
  5. ETOPOSIDE. [Suspect]
     Active Substance: ETOPOSIDE
     Dosage: MEAM REGIMEN ON DAYS -6 TO -3
     Route: 065
  6. CYTARABINE. [Suspect]
     Active Substance: CYTARABINE
     Indication: LYMPHOMA
     Dosage: MEAM REGIMEN: ON DAYS -6 TO -3
     Route: 065
  7. RITUXIMAB. [Suspect]
     Active Substance: RITUXIMAB
     Indication: LYMPHOMA
     Route: 042
  8. MELPHALAN. [Suspect]
     Active Substance: MELPHALAN
     Dosage: MEAM REGIMEN: ON DAY -2
     Route: 065

REACTIONS (7)
  - Adenoviral haemorrhagic cystitis [Unknown]
  - Acute kidney injury [Unknown]
  - Pneumocystis jirovecii pneumonia [Unknown]
  - Clostridium difficile colitis [Unknown]
  - Febrile neutropenia [Unknown]
  - Device related infection [Unknown]
  - Pleural effusion [Unknown]
